FAERS Safety Report 7606453-X (Version None)
Quarter: 2011Q3

REPORT INFORMATION
  Report Type: 
  Country: None (occurrence: None)
  Receive Date: 20110713
  Receipt Date: 20110624
  Transmission Date: 20111222
  Serious: Yes (Other)
  Sender: FDA-Public Use
  Company Number: JP-EISAI INC-E3810-04499-SPO-JP

PATIENT
  Age: 61 Year
  Sex: Male

DRUGS (2)
  1. RABEPRAZOLE SODIUM [Suspect]
     Dosage: UNKNOWN
     Route: 048
     Dates: start: 20100801, end: 20101001
  2. MESALAMINE [Suspect]
     Dosage: UNKNOWN
     Route: 048

REACTIONS (1)
  - EOSINOPHILIC PNEUMONIA [None]
